FAERS Safety Report 13459243 (Version 2)
Quarter: 2017Q2

REPORT INFORMATION
  Report Type: Report from Study
  Country: US (occurrence: US)
  Receive Date: 20170419
  Receipt Date: 20170626
  Transmission Date: 20170830
  Serious: Yes (Other)
  Sender: FDA-Public Use
  Company Number: US-AMGEN-USASL2017058072

PATIENT
  Age: 60 Year
  Sex: Female

DRUGS (1)
  1. ENBREL [Suspect]
     Active Substance: ETANERCEPT
     Indication: RHEUMATOID ARTHRITIS
     Dosage: 50 MG, QWK
     Route: 065

REACTIONS (7)
  - Rheumatoid arthritis [Recovering/Resolving]
  - Therapeutic response decreased [Unknown]
  - Incorrect product storage [Unknown]
  - Malaise [Unknown]
  - Spinal disorder [Unknown]
  - Musculoskeletal stiffness [Unknown]
  - Arthropathy [Unknown]

NARRATIVE: CASE EVENT DATE: 201704
